FAERS Safety Report 8959944 (Version 1)
Quarter: 2012Q4

REPORT INFORMATION
  Report Type: 
  Country: US (occurrence: US)
  Receive Date: 20121211
  Receipt Date: 20121211
  Transmission Date: 20130627
  Serious: No
  Sender: FDA-Public Use
  Company Number: US-009507513-1212USA002471

PATIENT
  Age: 60 Year

DRUGS (3)
  1. JANUVIA [Suspect]
     Route: 048
  2. VYTORIN [Suspect]
  3. METFORMIN [Suspect]

REACTIONS (2)
  - Amylase increased [Unknown]
  - Lipase increased [Unknown]
